FAERS Safety Report 12840595 (Version 3)
Quarter: 2017Q1

REPORT INFORMATION
  Report Type: Report from Study
  Country: US (occurrence: US)
  Receive Date: 20161012
  Receipt Date: 20170202
  Transmission Date: 20170428
  Serious: Yes (Hospitalization, Other)
  Sender: FDA-Public Use
  Company Number: US-MALLINCKRODT-T201604751

PATIENT
  Age: 73 Year
  Sex: Female

DRUGS (2)
  1. REPOSITORY CORTICOTROPIN INJECTION [Suspect]
     Active Substance: CORTICOTROPIN
     Indication: PROTEINURIA
     Dosage: 40U/0.5ML 2X/WK (SUN. AND THURS.)
     Route: 058
     Dates: start: 201609, end: 20160915
  2. REPOSITORY CORTICOTROPIN INJECTION [Suspect]
     Active Substance: CORTICOTROPIN
     Indication: NEPHROTIC SYNDROME
     Dosage: 40U/0.5ML 2X/WK (SUN. AND THURS.)
     Route: 058
     Dates: start: 20160724, end: 20160908

REACTIONS (10)
  - Abdominal pain [Recovering/Resolving]
  - Gastrointestinal wall thickening [Unknown]
  - Fluid retention [Not Recovered/Not Resolved]
  - Cardiac disorder [Not Recovered/Not Resolved]
  - Weight increased [Not Recovered/Not Resolved]
  - Drug ineffective [Unknown]
  - Hypertension [Unknown]
  - Pleural effusion [Unknown]
  - Anaemia [Recovering/Resolving]
  - Fatigue [Not Recovered/Not Resolved]

NARRATIVE: CASE EVENT DATE: 2016
